FAERS Safety Report 10512914 (Version 2)
Quarter: 2014Q4

REPORT INFORMATION
  Report Type: Spontaneous
  Country: GR (occurrence: GR)
  Receive Date: 20141013
  Receipt Date: 20141117
  Transmission Date: 20150528
  Serious: Yes (Death, Hospitalization, Other)
  Sender: FDA-Public Use
  Company Number: GR-ROCHE-1473409

PATIENT
  Age: 44 Year
  Sex: Female

DRUGS (2)
  1. BUDESONIDE. [Concomitant]
     Active Substance: BUDESONIDE
  2. XOLAIR [Suspect]
     Active Substance: OMALIZUMAB
     Indication: ASTHMA
     Route: 065

REACTIONS (4)
  - Hypotension [Fatal]
  - Pneumonitis [Fatal]
  - Spirometry abnormal [Unknown]
  - Asthma [Fatal]

NARRATIVE: CASE EVENT DATE: 20141002
